FAERS Safety Report 23122813 (Version 1)
Quarter: 2023Q4

REPORT INFORMATION
  Report Type: Spontaneous
  Country: US (occurrence: US)
  Receive Date: 20231030
  Receipt Date: 20231030
  Transmission Date: 20240110
  Serious: No
  Sender: FDA-Public Use
  Company Number: US-ELI_LILLY_AND_COMPANY-US202310016517

PATIENT
  Age: 64 Year
  Sex: Male

DRUGS (1)
  1. TALTZ [Suspect]
     Active Substance: IXEKIZUMAB
     Indication: Psoriatic arthropathy
     Dosage: 80 MG, OTHER (EVERY FOUR WEEKS)
     Route: 058
     Dates: start: 20230914

REACTIONS (2)
  - Pruritus [Unknown]
  - Multiple allergies [Unknown]

NARRATIVE: CASE EVENT DATE: 20231019
